FAERS Safety Report 18359435 (Version 1)
Quarter: 2020Q4

REPORT INFORMATION
  Report Type: Spontaneous
  Country: US (occurrence: US)
  Receive Date: 20201008
  Receipt Date: 20201008
  Transmission Date: 20210114
  Serious: No
  Sender: FDA-Public Use
  Company Number: None

PATIENT
  Age: 43 Year
  Sex: Male
  Weight: 148.5 kg

DRUGS (3)
  1. MONTELUKAST SODIUM TABLETS, USP 10MG, LOT# MON17384 EXP. 12/31/2019, [Suspect]
     Active Substance: MONTELUKAST SODIUM
     Indication: COUGH
     Dosage: ?          QUANTITY:1 TABLET(S);?
     Route: 048
     Dates: start: 20200827, end: 20201006
  2. MONTELUKAST SODIUM TABLETS, USP 10MG, LOT# MON17384 EXP. 12/31/2019, [Suspect]
     Active Substance: MONTELUKAST SODIUM
     Indication: ASTHMA
     Dosage: ?          QUANTITY:1 TABLET(S);?
     Route: 048
     Dates: start: 20200827, end: 20201006
  3. FAMOTIDINE. [Concomitant]
     Active Substance: FAMOTIDINE

REACTIONS (6)
  - Depressed mood [None]
  - Anxiety [None]
  - Mood altered [None]
  - Dry mouth [None]
  - Feeling abnormal [None]
  - Disorientation [None]

NARRATIVE: CASE EVENT DATE: 20201008
